FAERS Safety Report 4908333-7 (Version None)
Quarter: 2006Q1

REPORT INFORMATION
  Report Type: 
  Country: None (occurrence: None)
  Receive Date: 20060210
  Receipt Date: 20060131
  Transmission Date: 20060701
  Serious: Yes (Hospitalization)
  Sender: FDA-Public Use
  Company Number: DE-ABBOTT-06P-062-0323844-00

PATIENT
  Sex: Female

DRUGS (8)
  1. HUMIRA [Suspect]
     Indication: DRUG USE FOR UNKNOWN INDICATION
     Dates: start: 20041201
  2. METHOTREXATE SODIUM [Concomitant]
     Indication: DRUG USE FOR UNKNOWN INDICATION
     Dates: start: 20041201, end: 20041201
  3. METHOTREXATE SODIUM [Concomitant]
  4. METHOTREXATE SODIUM [Concomitant]
     Dates: start: 20010701
  5. INFLIXIMAB [Concomitant]
     Indication: DRUG USE FOR UNKNOWN INDICATION
     Dates: start: 20030603, end: 20040622
  6. INFLIXIMAB [Concomitant]
     Dates: start: 20021217
  7. INFLIXIMAB [Concomitant]
     Dates: start: 20020618
  8. INFLIXIMAB [Concomitant]
     Dates: start: 20010628, end: 20011218

REACTIONS (1)
  - SPINAL COLUMN STENOSIS [None]
